FAERS Safety Report 19925761 (Version 2)
Quarter: 2021Q4

REPORT INFORMATION
  Report Type: Spontaneous
  Country: NO (occurrence: NO)
  Receive Date: 20211007
  Receipt Date: 20211122
  Transmission Date: 20220303
  Serious: Yes (Other)
  Sender: FDA-Public Use
  Company Number: NO-TEVA-2021-NO-1961581

PATIENT
  Sex: Female

DRUGS (1)
  1. AJOVY [Suspect]
     Active Substance: FREMANEZUMAB-VFRM
     Route: 058
     Dates: start: 20210608, end: 20210908

REACTIONS (3)
  - Hallucination [Unknown]
  - Nightmare [Recovered/Resolved]
  - Visual impairment [Recovering/Resolving]
